FAERS Safety Report 8537591-5 (Version None)
Quarter: 2012Q3

REPORT INFORMATION
  Report Type: 
  Country: None (occurrence: None)
  Receive Date: 20120725
  Receipt Date: 20120629
  Transmission Date: 20120928
  Serious: No
  Sender: FDA-Public Use
  Company Number: US-ASTRAZENECA-2011SE76788

PATIENT
  Age: 56 Year
  Sex: Male

DRUGS (2)
  1. SEROQUEL [Suspect]
     Indication: DEPRESSION
     Route: 048
  2. SEROQUEL [Suspect]
     Indication: SCHIZOPHRENIA
     Route: 048

REACTIONS (6)
  - MALAISE [None]
  - SLEEP APNOEA SYNDROME [None]
  - FATIGUE [None]
  - DRUG DOSE OMISSION [None]
  - DEPRESSION [None]
  - INTENTIONAL DRUG MISUSE [None]
